FAERS Safety Report 16737572 (Version 1)
Quarter: 2019Q3

REPORT INFORMATION
  Report Type: Spontaneous
  Country: IL (occurrence: IL)
  Receive Date: 20190823
  Receipt Date: 20190823
  Transmission Date: 20191005
  Serious: Yes (Other)
  Sender: FDA-Public Use
  Company Number: IL-BIOVITRUM-2019IL2043

PATIENT
  Age: 76 Year
  Sex: Male

DRUGS (1)
  1. KINERET [Suspect]
     Active Substance: ANAKINRA
     Indication: MYELODYSPLASTIC SYNDROME

REACTIONS (4)
  - Myelodysplastic syndrome [Unknown]
  - Neutropenia [Unknown]
  - Off label use [Unknown]
  - Injection site reaction [Unknown]
